FAERS Safety Report 11879134 (Version 1)
Quarter: 2015Q4

REPORT INFORMATION
  Report Type: Spontaneous
  Country: FR (occurrence: FR)
  Receive Date: 20151230
  Receipt Date: 20151230
  Transmission Date: 20160305
  Serious: Yes (Hospitalization)
  Sender: FDA-Public Use
  Company Number: FR-SA-200711666FR

PATIENT
  Sex: Male
  Weight: 13 kg

DRUGS (6)
  1. RIFAMPICIN [Suspect]
     Active Substance: RIFAMPIN
     Indication: INTERVERTEBRAL DISCITIS
     Route: 048
     Dates: start: 20070108, end: 20070210
  2. DOLIPRANE [Concomitant]
     Active Substance: ACETAMINOPHEN
     Indication: INTERVERTEBRAL DISCITIS
     Dosage: DOSE UNIT: 170 MG
     Route: 054
     Dates: start: 20070108
  3. RIFAMPICIN [Suspect]
     Active Substance: RIFAMPIN
     Indication: INTERVERTEBRAL DISCITIS
     Dosage: DOSE UNIT: 600 MG
     Route: 042
     Dates: start: 20061221, end: 20070108
  4. SPECIAFOLDINE [Concomitant]
     Active Substance: FOLIC ACID
     Indication: INTERVERTEBRAL DISCITIS
     Dosage: DOSE UNIT: 5 MG
     Route: 048
     Dates: start: 20070108
  5. BACTRIM [Suspect]
     Active Substance: SULFAMETHOXAZOLE\TRIMETHOPRIM
     Indication: INTERVERTEBRAL DISCITIS
     Route: 048
     Dates: start: 20070108, end: 20070206
  6. CLAFORAN [Concomitant]
     Active Substance: CEFOTAXIME SODIUM
     Indication: INTERVERTEBRAL DISCITIS
     Route: 042
     Dates: start: 20061221, end: 20070108

REACTIONS (2)
  - Drug reaction with eosinophilia and systemic symptoms [Recovering/Resolving]
  - Hepatitis [Not Recovered/Not Resolved]

NARRATIVE: CASE EVENT DATE: 200702
